FAERS Safety Report 4376134-7 (Version None)
Quarter: 2004Q2

REPORT INFORMATION
  Report Type: 
  Country: None (occurrence: None)
  Receive Date: 20040609
  Receipt Date: 20040609
  Transmission Date: 20050107
  Serious: Yes (Hospitalization)
  Sender: FDA-Public Use
  Company Number: None

PATIENT
  Age: 79 Year
  Sex: Male
  Weight: 60.782 kg

DRUGS (10)
  1. CISPLATIN [Suspect]
     Indication: PHARYNGEAL CANCER STAGE UNSPECIFIED
     Dosage: 100 MG /M2/IV DAY 22 43
     Route: 042
     Dates: start: 20040510
  2. CISPLATIN [Suspect]
     Indication: SQUAMOUS CELL CARCINOMA
     Dosage: 100 MG /M2/IV DAY 22 43
     Route: 042
     Dates: start: 20040510
  3. EXTERNAT RADIATION [Suspect]
     Indication: PHARYNGEAL CANCER STAGE UNSPECIFIED
     Dosage: 2.0 Q4 Q DAY
     Dates: start: 20040510, end: 20040608
  4. EXTERNAT RADIATION [Suspect]
     Indication: SQUAMOUS CELL CARCINOMA
     Dosage: 2.0 Q4 Q DAY
     Dates: start: 20040510, end: 20040608
  5. FOLIC ACID [Concomitant]
  6. ATENOLOL [Concomitant]
  7. ISOSORBIDE [Concomitant]
  8. LESCOL [Concomitant]
  9. DILTIAZEM [Concomitant]
  10. ASPIRIN [Concomitant]

REACTIONS (2)
  - NEUTROPENIA [None]
  - PNEUMONIA [None]
